FAERS Safety Report 19712705 (Version 7)
Quarter: 2022Q2

REPORT INFORMATION
  Report Type: Report from Study
  Country: JP (occurrence: JP)
  Receive Date: 20210816
  Receipt Date: 20220514
  Transmission Date: 20220721
  Serious: Yes (Hospitalization, Other)
  Sender: FDA-Public Use
  Company Number: JP-BRISTOL-MYERS SQUIBB COMPANY-BMS-2021-079088

PATIENT
  Age: 65 Year
  Sex: Male
  Weight: 48.5 kg

DRUGS (32)
  1. NIVOLUMAB [Suspect]
     Active Substance: NIVOLUMAB
     Indication: Oesophageal carcinoma
     Dosage: 360 MILLIGRAM, Q3WK
     Route: 041
     Dates: start: 20210708, end: 20210729
  2. ERIBULIN MESYLATE [Suspect]
     Active Substance: ERIBULIN MESYLATE
     Indication: Oesophageal carcinoma
     Dosage: 2.1 MILLIGRAM/SQ. METER, Q3WK
     Route: 065
     Dates: start: 20210708
  3. ERIBULIN MESYLATE [Suspect]
     Active Substance: ERIBULIN MESYLATE
     Dosage: 1.7 MILLIGRAM/SQ. METER, Q3WK
     Route: 065
     Dates: start: 20210729, end: 20210729
  4. DICLOFENAC SODIUM [Concomitant]
     Active Substance: DICLOFENAC SODIUM
     Indication: Prophylaxis
     Dosage: 25 MG, PRN
     Route: 048
     Dates: start: 20210726
  5. PIPERACILLIN SODIUM\TAZOBACTAM SODIUM [Concomitant]
     Active Substance: PIPERACILLIN SODIUM\TAZOBACTAM SODIUM
     Indication: Febrile neutropenia
     Dosage: 4.5 G, Q6H
     Route: 042
     Dates: start: 20210804, end: 20210805
  6. PIPERACILLIN SODIUM\TAZOBACTAM SODIUM [Concomitant]
     Active Substance: PIPERACILLIN SODIUM\TAZOBACTAM SODIUM
     Dosage: 9 G/DAY
     Route: 042
     Dates: start: 20210806, end: 20210808
  7. VONOPRAZAN FUMARATE [Concomitant]
     Active Substance: VONOPRAZAN FUMARATE
     Indication: Gastritis prophylaxis
     Dosage: 20 MG, EVERYDAY
     Route: 048
     Dates: start: 2021
  8. VONOPRAZAN FUMARATE [Concomitant]
     Active Substance: VONOPRAZAN FUMARATE
     Dosage: 20 MG, EVERYDAY
     Route: 048
     Dates: start: 2021
  9. LOXOPROFEN SODIUM [Concomitant]
     Active Substance: LOXOPROFEN SODIUM
     Indication: Back pain
     Dosage: 50 MG, PRN
     Route: 062
     Dates: start: 20210624
  10. MAGNESIUM OXIDE [Concomitant]
     Active Substance: MAGNESIUM OXIDE
     Indication: Constipation
     Dosage: 660 MG, Q8H
     Route: 048
     Dates: start: 2021
  11. MAGNESIUM OXIDE [Concomitant]
     Active Substance: MAGNESIUM OXIDE
     Dosage: 660 MG, Q8H
     Route: 048
     Dates: start: 2021
  12. AMLODIPINE [Concomitant]
     Active Substance: AMLODIPINE BESYLATE
     Indication: Hypertension
     Dosage: 5 MG, EVERYDAY
     Route: 048
     Dates: start: 2008
  13. AMLODIPINE [Concomitant]
     Active Substance: AMLODIPINE BESYLATE
     Dosage: 5 MG, EVERYDAY
     Route: 048
     Dates: start: 2008
  14. SODIUM GUALENATE MONOHYDRATE [Concomitant]
     Active Substance: SODIUM GUALENATE MONOHYDRATE
     Indication: Prophylaxis
     Dosage: 5 DROP, PRN
     Route: 002
     Dates: start: 20210708
  15. TOPSYM [Concomitant]
     Indication: Pruritus
     Dosage: APPROPRIATE AMOUNT, PRN
     Route: 061
     Dates: start: 20210715
  16. TOPSYM [Concomitant]
     Indication: Pruritus
  17. SODIUM BICARBONATE [Concomitant]
     Active Substance: SODIUM BICARBONATE
     Indication: Prophylaxis
     Dosage: 0.5 G, PRN
     Route: 048
     Dates: start: 20210726
  18. TRANEXAMIC ACID [Concomitant]
     Active Substance: TRANEXAMIC ACID
     Indication: Prophylaxis
     Dosage: 250 MG, PRN
     Route: 048
     Dates: start: 20210726
  19. ELNEOPA NF NO.1 [Concomitant]
     Indication: Nutritional supplementation
     Dosage: 1500 ML, EVERYDAY
     Route: 042
     Dates: start: 20210805
  20. SOLDEM 3A [Concomitant]
     Active Substance: CARBOHYDRATES\POTASSIUM CHLORIDE\SODIUM CHLORIDE\SODIUM LACTATE
     Indication: Fluid replacement
     Dosage: 500 ML, EVERYDAY
     Route: 042
     Dates: start: 20210804
  21. ACETAMINOPHEN [Concomitant]
     Active Substance: ACETAMINOPHEN
     Indication: Antipyresis
     Dosage: 1000 MG, PRN
     Route: 042
  22. CORTRIL [Concomitant]
     Active Substance: HYDROCORTISONE
     Indication: Adrenal insufficiency
     Dosage: 7.5 MG, Q12H
     Route: 048
     Dates: start: 20210810
  23. LEVOTHYROXINE [Concomitant]
     Active Substance: LEVOTHYROXINE
     Indication: Hypothyroidism
     Dosage: 25 UL, EVERYDAY
     Route: 048
     Dates: start: 20210810
  24. SULFAMETHOXAZOLE\TRIMETHOPRIM [Concomitant]
     Active Substance: SULFAMETHOXAZOLE\TRIMETHOPRIM
     Indication: Infection prophylaxis
     Dosage: 1 DF, EVERYDAY
     Route: 048
     Dates: start: 20210827
  25. FAMOTIDINE [Concomitant]
     Active Substance: FAMOTIDINE
     Indication: Gastritis prophylaxis
     Dosage: 10 MG, EVERYDAY
     Route: 048
     Dates: start: 20211007
  26. VOGLIBOSE [Concomitant]
     Active Substance: VOGLIBOSE
     Indication: Diabetes mellitus management
     Dosage: 0.3 MG, Q8H
     Route: 048
     Dates: start: 20211007
  27. TRAZODONE HYDROCHLORIDE [Concomitant]
     Active Substance: TRAZODONE HYDROCHLORIDE
     Indication: Insomnia
     Dosage: 25 MG, EVERYDAY
     Route: 048
     Dates: start: 20210708
  28. DAYVIGO [Concomitant]
     Active Substance: LEMBOREXANT
     Indication: Insomnia
     Dosage: 5 MG, EVERYDAY
     Route: 048
     Dates: start: 20210907
  29. LINAGLIPTIN [Concomitant]
     Active Substance: LINAGLIPTIN
     Indication: Diabetes mellitus management
     Dosage: 5 MG, EVERYDAY
     Route: 048
     Dates: start: 20210907
  30. HEPARINOID [Concomitant]
     Indication: Dry skin prophylaxis
     Dosage: ADEQUATE DOSE, PRN
     Route: 061
     Dates: start: 20211104
  31. MOSAPRIDE CITRATE [Concomitant]
     Active Substance: MOSAPRIDE CITRATE
     Indication: Gastritis prophylaxis
     Dosage: 5 MG, Q8H
     Route: 048
     Dates: start: 20210527
  32. BROTIZOLAM [Concomitant]
     Active Substance: BROTIZOLAM
     Indication: Insomnia
     Dosage: 0.25 MG, PRN
     Route: 048

REACTIONS (3)
  - Acute kidney injury [Recovered/Resolved with Sequelae]
  - Febrile neutropenia [Recovered/Resolved]
  - Adenocarcinoma gastric [Recovered/Resolved]

NARRATIVE: CASE EVENT DATE: 20210804
